FAERS Safety Report 6093651-2 (Version None)
Quarter: 2009Q1

REPORT INFORMATION
  Report Type: 
  Country: None (occurrence: None)
  Receive Date: 20090226
  Receipt Date: 20090217
  Transmission Date: 20090719
  Serious: Yes (Other)
  Sender: FDA-Public Use
  Company Number: JP-PFIZER INC-2009171637

PATIENT

DRUGS (1)
  1. HALCION [Suspect]
     Route: 048

REACTIONS (2)
  - CATARACT [None]
  - EYE PAIN [None]
